FAERS Safety Report 13504113 (Version 1)
Quarter: 2017Q2

REPORT INFORMATION
  Report Type: Not Available
  Country: JP (occurrence: JP)
  Receive Date: 20170502
  Receipt Date: 20170502
  Transmission Date: 20170830
  Serious: Yes (Other)
  Sender: FDA-Public Use
  Company Number: JP-ANIPHARMA-2017-JP-000022

PATIENT
  Age: 24 Year
  Sex: Male

DRUGS (4)
  1. PALIPERIDONE. [Suspect]
     Active Substance: PALIPERIDONE
     Dosage: 12 MG/DAY
     Route: 065
  2. HALOPERIDOL. [Suspect]
     Active Substance: HALOPERIDOL
     Dosage: 50 MG
     Route: 065
  3. ZOTEPINE [Suspect]
     Active Substance: ZOTEPINE
     Dosage: 200 MG
     Route: 065
  4. RISPERIDONE (NON-SPECIFIC) [Suspect]
     Active Substance: RISPERIDONE
     Dosage: 8 MG
     Route: 065

REACTIONS (4)
  - Femur fracture [Unknown]
  - Suicide attempt [Unknown]
  - Catatonia [Unknown]
  - Dopamine dysregulation syndrome [Unknown]
